FAERS Safety Report 6143187-5 (Version None)
Quarter: 2009Q2

REPORT INFORMATION
  Report Type: 
  Country: None (occurrence: None)
  Receive Date: 20090403
  Receipt Date: 20031030
  Transmission Date: 20091009
  Serious: Yes (Other)
  Sender: FDA-Public Use
  Company Number: DE-ROCHE-598532

PATIENT
  Sex: Female

DRUGS (5)
  1. MYCOPHENOLATE MOFETIL [Suspect]
     Dosage: DRUG REPORTED: MYCOPHENOLAT MOFETIL
     Route: 048
     Dates: start: 20030915
  2. DACLIZUMAB [Suspect]
     Route: 042
  3. CYCLOSPORINE [Suspect]
     Dosage: DRUG REPORTED: CYCLOSPORINE
     Route: 048
     Dates: start: 20030915
  4. PREDNISOLONE [Suspect]
     Route: 042
     Dates: start: 20030915, end: 20030917
  5. PREDNISONE [Suspect]
     Dosage: DRUG REPORTED: PREDNISON
     Route: 048
     Dates: start: 20030917

REACTIONS (1)
  - SEROMA [None]
